FAERS Safety Report 20040192 (Version 1)
Quarter: 2021Q4

REPORT INFORMATION
  Report Type: Report from Study
  Country: BR (occurrence: BR)
  Receive Date: 20211106
  Receipt Date: 20211106
  Transmission Date: 20220303
  Serious: Yes (Hospitalization, Other)
  Sender: FDA-Public Use
  Company Number: BR-NOVARTISPH-NVSC2021BR250286

PATIENT
  Sex: Female

DRUGS (3)
  1. COSENTYX [Suspect]
     Active Substance: SECUKINUMAB
     Indication: Psoriasis
     Dosage: 300 MG, UNKNOWN
     Route: 065
     Dates: start: 202011
  2. COSENTYX [Suspect]
     Active Substance: SECUKINUMAB
     Dosage: 300 MG, QMO
     Route: 065
     Dates: start: 202101
  3. COSENTYX [Suspect]
     Active Substance: SECUKINUMAB
     Dosage: UNK
     Route: 065
     Dates: start: 20211018

REACTIONS (14)
  - Asthmatic crisis [Unknown]
  - Bronchitis [Unknown]
  - Diabetes mellitus [Not Recovered/Not Resolved]
  - Myocardial infarction [Unknown]
  - Cataract [Unknown]
  - Visual impairment [Unknown]
  - Retinal tear [Unknown]
  - Blindness transient [Recovered/Resolved]
  - Osteoarthritis [Unknown]
  - Rheumatic disorder [Unknown]
  - Overweight [Unknown]
  - Arthropathy [Unknown]
  - Pain [Unknown]
  - Discomfort [Unknown]
